FAERS Safety Report 18750541 (Version 1)
Quarter: 2021Q1

REPORT INFORMATION
  Report Type: Spontaneous
  Country: US (occurrence: US)
  Receive Date: 20210118
  Receipt Date: 20210118
  Transmission Date: 20210419
  Serious: Yes (Life-Threatening, Hospitalization, Other)
  Sender: FDA-Public Use
  Company Number: US-KVK-TECH, INC-20210100001

PATIENT
  Sex: Male
  Weight: 108.84 kg

DRUGS (1)
  1. PHENTERMINE HYDROCHLORIDE TABLETS, USP [Suspect]
     Active Substance: PHENTERMINE HYDROCHLORIDE
     Indication: METABOLIC DISORDER
     Dosage: 1 TABLET A DAY/ONCE DAILY
     Route: 048
     Dates: start: 20201209, end: 20201231

REACTIONS (5)
  - Psychomotor skills impaired [Recovering/Resolving]
  - Pain [Recovering/Resolving]
  - Abdominal discomfort [Recovering/Resolving]
  - Pancreatitis [Recovering/Resolving]
  - Dysphonia [Recovering/Resolving]

NARRATIVE: CASE EVENT DATE: 202012
